FAERS Safety Report 24333286 (Version 1)
Quarter: 2024Q3

REPORT INFORMATION
  Report Type: Spontaneous
  Country: US (occurrence: US)
  Receive Date: 20240918
  Receipt Date: 20240918
  Transmission Date: 20241017
  Serious: No
  Sender: PFIZER
  Company Number: US-PFIZER INC-PV202300103793

PATIENT
  Age: 74 Year
  Sex: Female
  Weight: 117.5 kg

DRUGS (2)
  1. IBRANCE [Suspect]
     Active Substance: PALBOCICLIB
     Indication: Breast cancer female
     Dosage: 100 MG, CYCLIC (DAILY WITH FOOD FOR 21 DAYS, THEN OFF FOR 7 DAYS)
     Dates: start: 20221005
  2. IBRANCE [Suspect]
     Active Substance: PALBOCICLIB
     Dosage: TAKE 1 (ONE) TABLET (75 MG TOTAL) BY MOUTH DAILY WITH FOOD TAKE FOR 21 DAYS THEN OFF FOR 7 DAYS
     Route: 048

REACTIONS (1)
  - Aphonia [Unknown]
